FAERS Safety Report 21572466 (Version 1)
Quarter: 2022Q4

REPORT INFORMATION
  Report Type: Spontaneous
  Country: US (occurrence: None)
  Receive Date: 20221108
  Receipt Date: 20221108
  Transmission Date: 20230113
  Serious: No
  Sender: FDA-Public Use
  Company Number: None

PATIENT
  Age: 36 Year
  Sex: Female
  Weight: 72 kg

DRUGS (2)
  1. ICY HOT MEDICATED NO MESS APPLICATOR [Suspect]
     Active Substance: MENTHOL
     Indication: Neck pain
     Dates: start: 20220112, end: 20221106
  2. ICY HOT MEDICATED NO MESS APPLICATOR [Suspect]
     Active Substance: MENTHOL
     Indication: Arthralgia

REACTIONS (4)
  - Application site pain [None]
  - Thermal burn [None]
  - Chemical burn [None]
  - Skin exfoliation [None]

NARRATIVE: CASE EVENT DATE: 20221106
